FAERS Safety Report 9958526 (Version 1)
Quarter: 2014Q1

REPORT INFORMATION
  Report Type: Spontaneous
  Country: CA (occurrence: CA)
  Receive Date: 20140305
  Receipt Date: 20140305
  Transmission Date: 20141002
  Serious: Yes (Hospitalization, Other)
  Sender: FDA-Public Use
  Company Number: CA-AMGEN-CANSP2014015217

PATIENT
  Age: 74 Year
  Sex: Male
  Weight: 64 kg

DRUGS (1)
  1. VECTIBIX [Suspect]
     Indication: PRODUCT USED FOR UNKNOWN INDICATION
     Dosage: 387 MG, 1 EVERY 2 WEEKS
     Route: 042

REACTIONS (2)
  - Intestinal obstruction [Unknown]
  - Abdominal pain lower [Unknown]
